FAERS Safety Report 6206999-5 (Version None)
Quarter: 2009Q2

REPORT INFORMATION
  Report Type: 
  Country: None (occurrence: None)
  Receive Date: 20090521
  Receipt Date: 20081210
  Transmission Date: 20091009
  Serious: Yes (Death, Life-Threatening, Hospitalization)
  Sender: FDA-Public Use
  Company Number: 2008BH013705

PATIENT
  Age: 68 Year
  Sex: Female

DRUGS (11)
  1. CYTOXAN [Suspect]
     Indication: BREAST CANCER
     Dosage: IV
     Route: 042
     Dates: start: 20080618, end: 20080618
  2. CYTOXAN [Suspect]
     Indication: BREAST CANCER
     Dosage: IV
     Route: 042
     Dates: start: 20080827, end: 20080827
  3. TAXOTERE [Suspect]
     Indication: BREAST CANCER
     Dosage: 120 MG;IV
     Route: 042
     Dates: start: 20080618, end: 20080618
  4. TAXOTERE [Suspect]
     Indication: BREAST CANCER
     Dosage: 120 MG;IV
     Route: 042
     Dates: start: 20080827, end: 20080827
  5. ALTACE [Concomitant]
  6. LASIX [Concomitant]
  7. GLUCOPHAGE [Concomitant]
  8. HYDROCODONE BITARTRATE [Concomitant]
  9. DEXAMETHASONE [Concomitant]
  10. VICODIN [Concomitant]
  11. HEART MEDICATIONS NOS [Concomitant]

REACTIONS (2)
  - ANAPHYLACTIC SHOCK [None]
  - HYPERSENSITIVITY [None]
